FAERS Safety Report 7790999-8 (Version None)
Quarter: 2011Q4

REPORT INFORMATION
  Report Type: 
  Country: None (occurrence: None)
  Receive Date: 20111002
  Receipt Date: 20110926
  Transmission Date: 20120403
  Serious: Yes (Other)
  Sender: FDA-Public Use
  Company Number: BR-BRISTOL-MYERS SQUIBB COMPANY-16030553

PATIENT
  Age: 78 Year
  Sex: Male
  Weight: 44 kg

DRUGS (2)
  1. HYDROXYUREA [Suspect]
     Dates: start: 20110113
  2. SPRYCEL [Suspect]
     Indication: CHRONIC MYELOID LEUKAEMIA
     Route: 048
     Dates: start: 20110210, end: 20110217

REACTIONS (3)
  - LIP OEDEMA [None]
  - CYANOSIS [None]
  - TONGUE OEDEMA [None]
